FAERS Safety Report 10023583 (Version 2)
Quarter: 2014Q1

REPORT INFORMATION
  Report Type: Report from Study
  Country: DE (occurrence: DE)
  Receive Date: 20140320
  Receipt Date: 20140320
  Transmission Date: 20141002
  Serious: Yes (Life-Threatening)
  Sender: FDA-Public Use
  Company Number: DE-UCBSA-111459

PATIENT
  Sex: Female

DRUGS (3)
  1. CERTOLIZUMAB PEGOL [Suspect]
     Indication: RHEUMATOID ARTHRITIS
     Dates: start: 201306, end: 20130611
  2. SALAZOSULFAPYRIDINE [Concomitant]
     Indication: RHEUMATOID ARTHRITIS
     Dosage: 1500 MG/D
     Dates: start: 201106
  3. AZATHIOPRIN [Concomitant]
     Dates: start: 201306

REACTIONS (1)
  - Drug hypersensitivity [Recovered/Resolved]
